FAERS Safety Report 8541743-8 (Version None)
Quarter: 2012Q3

REPORT INFORMATION
  Report Type: 
  Country: None (occurrence: None)
  Receive Date: 20120726
  Receipt Date: 20110902
  Transmission Date: 20120928
  Serious: No
  Sender: FDA-Public Use
  Company Number: US-ASTRAZENECA-2011SE53496

PATIENT
  Sex: Female

DRUGS (1)
  1. SEROQUEL [Suspect]
     Dosage: 25 MG AND 100 MG EACH DAY
     Route: 048
     Dates: start: 20090101

REACTIONS (4)
  - THYROID DISORDER [None]
  - MANIA [None]
  - HYPERTENSION [None]
  - BLOOD CHOLESTEROL ABNORMAL [None]
